FAERS Safety Report 12897191 (Version 2)
Quarter: 2016Q4

REPORT INFORMATION
  Report Type: Spontaneous
  Country: IT (occurrence: IT)
  Receive Date: 20161031
  Receipt Date: 20161222
  Transmission Date: 20170207
  Serious: Yes (Other)
  Sender: FDA-Public Use
  Company Number: IT-TEVA-706777ACC

PATIENT
  Age: 60 Year
  Sex: Male

DRUGS (2)
  1. ATORVASTATINA TEVA ITALIA - 10MG COMPRESSE RIVESTITE CON FILM - TEVA I [Suspect]
     Active Substance: ATORVASTATIN CALCIUM
     Indication: HYPERCHOLESTEROLAEMIA
     Dosage: 10 MILLIGRAM DAILY;
     Route: 048
     Dates: start: 20151201, end: 20151215
  2. RAMIPRIL MYLAN GENERICS - 5 MG COMPRESSE - MYLAN S.P.A. [Concomitant]
     Indication: PRODUCT USED FOR UNKNOWN INDICATION
     Dosage: 5 MG
     Route: 048

REACTIONS (2)
  - Constipation [Recovered/Resolved]
  - Diverticulitis [Recovered/Resolved]

NARRATIVE: CASE EVENT DATE: 20151215
